FAERS Safety Report 17781497 (Version 2)
Quarter: 2021Q3

REPORT INFORMATION
  Report Type: Report from Study
  Country: TH (occurrence: TH)
  Receive Date: 20200514
  Receipt Date: 20210813
  Transmission Date: 20211014
  Serious: Yes (Other)
  Sender: FDA-Public Use
  Company Number: TH-ASTRAZENECA-2020SE61324

PATIENT
  Age: 834 Month
  Sex: Female

DRUGS (5)
  1. TAGRISSO [Suspect]
     Active Substance: OSIMERTINIB
     Indication: LUNG NEOPLASM MALIGNANT
     Route: 048
     Dates: start: 202001
  2. ISONIAZID. [Suspect]
     Active Substance: ISONIAZID
     Indication: TUBERCULOSIS
     Route: 065
  3. UNSPECIFIED ANTIBIOTIC [Suspect]
     Active Substance: UNSPECIFIED INGREDIENT
     Indication: TUBERCULOSIS
     Route: 065
  4. UNSPECIFIED ANTI DIABETIC DRUG [Concomitant]
     Indication: DIABETES MELLITUS
     Route: 065
  5. ETHAMBUTOL [Suspect]
     Active Substance: ETHAMBUTOL HYDROCHLORIDE
     Indication: TUBERCULOSIS
     Route: 065

REACTIONS (9)
  - Dizziness [Unknown]
  - Skin exfoliation [Unknown]
  - Weight decreased [Recovered/Resolved]
  - Nausea [Recovering/Resolving]
  - Onychoclasis [Unknown]
  - Diarrhoea [Recovered/Resolved]
  - Mucosal ulceration [Recovering/Resolving]
  - Decreased appetite [Recovering/Resolving]
  - Vomiting [Recovering/Resolving]

NARRATIVE: CASE EVENT DATE: 202001
